FAERS Safety Report 9304078 (Version 2)
Quarter: 2013Q2

REPORT INFORMATION
  Report Type: Spontaneous
  Country: US (occurrence: US)
  Receive Date: 20130522
  Receipt Date: 20130603
  Transmission Date: 20140414
  Serious: Yes (Hospitalization, Other)
  Sender: FDA-Public Use
  Company Number: US-PURDUE-USA-2013-0102435

PATIENT
  Age: 70 Year
  Sex: Female

DRUGS (7)
  1. BUTRANS [Suspect]
     Indication: BACK PAIN
     Dosage: 10 MCG/HR, WEEKLY
     Route: 062
     Dates: start: 20130508
  2. SUBOXONE [Suspect]
     Indication: INTERVERTEBRAL DISC DEGENERATION
     Dosage: 12 MG, UNK
     Route: 062
     Dates: start: 2012
  3. SUBOXONE [Suspect]
     Indication: BACK PAIN
  4. GABAPENTIN [Concomitant]
     Indication: NEURALGIA
     Dosage: 300 MG, DAILY
     Route: 048
     Dates: start: 2012
  5. SPIRIVA [Concomitant]
     Indication: CHRONIC OBSTRUCTIVE PULMONARY DISEASE
     Dosage: UNK
     Route: 055
     Dates: start: 2012
  6. ADVAIR [Concomitant]
     Indication: CHRONIC OBSTRUCTIVE PULMONARY DISEASE
     Dosage: UNK
     Route: 055
     Dates: start: 2012
  7. ALBUTEROL                          /00139501/ [Concomitant]
     Indication: CHRONIC OBSTRUCTIVE PULMONARY DISEASE
     Dosage: UNK
     Route: 055
     Dates: start: 2012

REACTIONS (12)
  - Gastroenteritis [Unknown]
  - Drug withdrawal syndrome [Not Recovered/Not Resolved]
  - Vomiting [Unknown]
  - Dehydration [Unknown]
  - Hypotension [Unknown]
  - Hypertension [Unknown]
  - Mobility decreased [Unknown]
  - Feeling cold [Unknown]
  - Hot flush [Unknown]
  - Pyrexia [Unknown]
  - Nausea [Unknown]
  - Drug ineffective [Not Recovered/Not Resolved]
